FAERS Safety Report 7903674-3 (Version None)
Quarter: 2011Q4

REPORT INFORMATION
  Report Type: 
  Country: None (occurrence: None)
  Receive Date: 20111109
  Receipt Date: 20111106
  Transmission Date: 20120403
  Serious: No
  Sender: FDA-Public Use
  Company Number: US-PFIZER INC-2011271265

PATIENT
  Sex: Male
  Weight: 104 kg

DRUGS (4)
  1. PREMPRO [Suspect]
     Indication: OFF LABEL USE
     Dosage: 0.625/5 MG  3 TABLETS, 2X/DAY
     Route: 048
     Dates: start: 20110101
  2. PREMPRO [Suspect]
     Indication: INFLUENZA
  3. LISINOPRIL [Concomitant]
     Indication: BLOOD PRESSURE ABNORMAL
     Dosage: 40 MG, DAILY
     Dates: start: 20070101
  4. PREMPRO [Suspect]
     Indication: PNEUMONIA
     Dosage: 1.875/15 MG, 2X/DAY
     Route: 048
     Dates: start: 20110101, end: 20111001

REACTIONS (2)
  - ALOPECIA [None]
  - GYNAECOMASTIA [None]
